FAERS Safety Report 18339656 (Version 2)
Quarter: 2021Q1

REPORT INFORMATION
  Report Type: Spontaneous
  Country: US (occurrence: US)
  Receive Date: 20201002
  Receipt Date: 20210311
  Transmission Date: 20210419
  Serious: Yes (Other)
  Sender: FDA-Public Use
  Company Number: US-SA-2020SA270205

PATIENT
  Age: 62 Year
  Sex: Female
  Weight: 83.4 kg

DRUGS (5)
  1. TAXOTERE [Suspect]
     Active Substance: DOCETAXEL
     Dosage: 110 MG, Q3W
     Route: 042
     Dates: start: 20110707, end: 20110707
  2. PARAPLATIN [Concomitant]
     Active Substance: CARBOPLATIN
     Indication: BREAST CANCER FEMALE
     Dosage: UNK UNK, Q3W
  3. HERCEPTIN [Concomitant]
     Active Substance: TRASTUZUMAB
     Indication: BREAST CANCER FEMALE
  4. TYLENOL [Concomitant]
     Active Substance: ACETAMINOPHEN
  5. TAXOTERE [Suspect]
     Active Substance: DOCETAXEL
     Indication: BREAST CANCER FEMALE
     Dosage: 110 MG, Q3W
     Route: 042
     Dates: start: 20110303, end: 20110303

REACTIONS (3)
  - Psychological trauma [Unknown]
  - Alopecia [Recovering/Resolving]
  - Emotional distress [Unknown]

NARRATIVE: CASE EVENT DATE: 201301
